FAERS Safety Report 4532335-6 (Version None)
Quarter: 2004Q4

REPORT INFORMATION
  Report Type: 
  Country: None (occurrence: None)
  Receive Date: 20041206
  Receipt Date: 20041026
  Transmission Date: 20050328
  Serious: No
  Sender: FDA-Public Use
  Company Number: US_0411107640

PATIENT
  Sex: Male

DRUGS (4)
  1. CYMBALTA [Suspect]
     Indication: DEPRESSION
     Dosage: 30 MG/2 DAY
     Dates: start: 20041001
  2. PAXIL [Concomitant]
  3. SEROQUEL [Concomitant]
  4. KLONOPIN [Concomitant]

REACTIONS (5)
  - ANGER [None]
  - DEPRESSION [None]
  - FEELING ABNORMAL [None]
  - HEART RATE INCREASED [None]
  - INSOMNIA [None]
